FAERS Safety Report 4528343-1 (Version None)
Quarter: 2004Q4

REPORT INFORMATION
  Report Type: 
  Country: None (occurrence: None)
  Receive Date: 20041130
  Receipt Date: 20040510
  Transmission Date: 20050328
  Serious: Yes (Disabling)
  Sender: FDA-Public Use
  Company Number: WAES 0405USA00616

PATIENT
  Age: 73 Year
  Sex: Male

DRUGS (4)
  1. FOSAMAX [Suspect]
     Indication: OSTEOPOROSIS
     Dosage: 70 MG/WKY/PO
     Route: 048
     Dates: start: 19980101
  2. FOSAMAX [Suspect]
     Indication: OSTEOPOROSIS
     Dosage: 70 MG/WKY/PO
     Route: 048
     Dates: start: 20031101
  3. CALCIUM [Concomitant]
  4. VITAMIN D [Concomitant]

REACTIONS (3)
  - COLONIC POLYP [None]
  - DIARRHOEA [None]
  - FOREIGN BODY TRAUMA [None]
